FAERS Safety Report 7153695-6 (Version None)
Quarter: 2010Q4

REPORT INFORMATION
  Report Type: 
  Country: None (occurrence: None)
  Receive Date: 20101213
  Receipt Date: 20101209
  Transmission Date: 20110411
  Serious: Yes (Hospitalization)
  Sender: FDA-Public Use
  Company Number: CH-PFIZER INC-2010167803

PATIENT
  Age: 33 Year
  Sex: Female

DRUGS (3)
  1. CYTOTEC [Suspect]
     Indication: DELIVERY
     Dosage: 50 UG, SINGLE
     Dates: start: 20101002, end: 20101002
  2. CYTOTEC [Suspect]
     Indication: POSTPARTUM HAEMORRHAGE
     Dosage: 100 UG, SINGLE
     Route: 054
     Dates: start: 20101001, end: 20101001
  3. SYNTOCINON [Suspect]
     Indication: DELIVERY
     Dosage: UNK
     Route: 041
     Dates: start: 20101002, end: 20101002

REACTIONS (3)
  - GLOMERULONEPHRITIS [None]
  - NEPHROTIC SYNDROME [None]
  - OFF LABEL USE [None]
